FAERS Safety Report 4367653-8 (Version None)
Quarter: 2004Q2

REPORT INFORMATION
  Report Type: 
  Country: None (occurrence: None)
  Receive Date: 20040601
  Receipt Date: 20040323
  Transmission Date: 20050107
  Serious: Yes (Other)
  Sender: FDA-Public Use
  Company Number: US-GLAXOSMITHKLINE-A0504101A

PATIENT
  Age: 51 Year
  Sex: Male
  Weight: 58.6 kg

DRUGS (4)
  1. EPIVIR-HBV [Suspect]
     Dosage: 100MG PER DAY
     Route: 048
     Dates: start: 20040301
  2. PROTON PUMP INHIBITOR [Concomitant]
  3. M.V.I. [Concomitant]
  4. FOLIC ACID [Concomitant]

REACTIONS (1)
  - THROMBOCYTOPENIA [None]
